FAERS Safety Report 19488295 (Version 4)
Quarter: 2022Q2

REPORT INFORMATION
  Report Type: Report from Study
  Country: CL (occurrence: CL)
  Receive Date: 20210702
  Receipt Date: 20220520
  Transmission Date: 20220721
  Serious: Yes (Other)
  Sender: FDA-Public Use
  Company Number: CL-BRISTOL-MYERS SQUIBB COMPANY-BMS-2021-064250

PATIENT
  Age: 67 Year
  Sex: Male
  Weight: 68.6 kg

DRUGS (2)
  1. IPILIMUMAB [Suspect]
     Active Substance: IPILIMUMAB
     Indication: Renal cell carcinoma
     Route: 042
     Dates: start: 20210325, end: 20210504
  2. CABOZANTINIB [Suspect]
     Active Substance: CABOZANTINIB
     Indication: Renal cell carcinoma
     Dosage: ON 23-JUN-2021, THE PATIENT RECEIVED MOST RECENT DOSE OF CABOZANTINIB/PLACEBO?20MG ON 16-OCT-2021
     Route: 048
     Dates: start: 20210325, end: 20210625

REACTIONS (3)
  - Lipase increased [Recovering/Resolving]
  - Alanine aminotransferase increased [Recovering/Resolving]
  - Amylase increased [Recovering/Resolving]

NARRATIVE: CASE EVENT DATE: 20210624
